FAERS Safety Report 14998829 (Version 1)
Quarter: 2018Q2

REPORT INFORMATION
  Report Type: Report from Study
  Country: MX (occurrence: MX)
  Receive Date: 20180612
  Receipt Date: 20180612
  Transmission Date: 20180711
  Serious: Yes (Hospitalization, Other)
  Sender: FDA-Public Use
  Company Number: MX-INCYTE CORPORATION-2018IN004693

PATIENT

DRUGS (3)
  1. JAKAVI [Suspect]
     Active Substance: RUXOLITINIB
     Indication: MYELOID METAPLASIA
     Dosage: 2 DF, QD
     Route: 048
     Dates: start: 2014, end: 201804
  2. TALIDOMIDA [Concomitant]
     Active Substance: THALIDOMIDE
     Indication: MYELOID METAPLASIA
     Dosage: 0.5 OT, QD
     Route: 048
     Dates: start: 20180525
  3. HYDREA [Concomitant]
     Active Substance: HYDROXYUREA
     Indication: MYELOID METAPLASIA
     Dosage: 1 OT, QD
     Route: 048
     Dates: start: 20180525

REACTIONS (5)
  - Anaemia [Not Recovered/Not Resolved]
  - Splenitis [Not Recovered/Not Resolved]
  - Intestinal obstruction [Recovered/Resolved]
  - Product use in unapproved indication [Unknown]
  - Chronic obstructive pulmonary disease [Not Recovered/Not Resolved]

NARRATIVE: CASE EVENT DATE: 201804
